FAERS Safety Report 25441068 (Version 2)
Quarter: 2025Q4

REPORT INFORMATION
  Report Type: Spontaneous
  Country: US (occurrence: None)
  Receive Date: 20250616
  Receipt Date: 20251024
  Transmission Date: 20260118
  Serious: No
  Sender: UCB
  Company Number: US-UCBSA-2025014580

PATIENT
  Age: 35 Year

DRUGS (7)
  1. BIMZELX [Suspect]
     Active Substance: BIMEKIZUMAB-BKZX
     Indication: Spondyloarthropathy
     Dosage: 160 MILLIGRAM, EV 4 WEEKS
  2. COSENTYX [Concomitant]
     Active Substance: SECUKINUMAB
     Indication: Product used for unknown indication
     Dosage: UNK
  3. CYCLOBENZAPRINE [Concomitant]
     Active Substance: CYCLOBENZAPRINE
     Indication: Product used for unknown indication
     Dosage: UNK
  4. FROVATRIPTAN [Concomitant]
     Active Substance: FROVATRIPTAN
     Indication: Product used for unknown indication
     Dosage: 2.5 MILLIGRAM
  5. Gabapentin pow [Concomitant]
     Indication: Product used for unknown indication
     Dosage: UNK (POWDER)
  6. Levonor [Concomitant]
     Indication: Product used for unknown indication
     Dosage: UNK (0.1-0.02)
  7. TRINESSA [Concomitant]
     Active Substance: ETHINYL ESTRADIOL\NORGESTIMATE
     Indication: Product used for unknown indication
     Dosage: UNK

REACTIONS (3)
  - Spondyloarthropathy [Not Recovered/Not Resolved]
  - Headache [Not Recovered/Not Resolved]
  - Drug ineffective [Unknown]
